FAERS Safety Report 23262155 (Version 1)
Quarter: 2023Q4

REPORT INFORMATION
  Report Type: Spontaneous
  Country: US (occurrence: None)
  Receive Date: 20231204
  Receipt Date: 20231204
  Transmission Date: 20240110
  Serious: Yes (Hospitalization)
  Sender: FDA-Public Use
  Company Number: None

PATIENT
  Age: 79 Year
  Sex: Male
  Weight: 63.9 kg

DRUGS (1)
  1. BACLOFEN [Suspect]
     Active Substance: BACLOFEN
     Dosage: FREQUENCY : TWICE A DAY;?
     Route: 048
     Dates: start: 20230620, end: 20230621

REACTIONS (6)
  - Confusional state [None]
  - Sedation [None]
  - Mental status changes [None]
  - Asthenia [None]
  - Blood creatinine increased [None]
  - Toxic encephalopathy [None]

NARRATIVE: CASE EVENT DATE: 20230621
